FAERS Safety Report 15083213 (Version 1)
Quarter: 2018Q2

REPORT INFORMATION
  Report Type: Spontaneous
  Country: IE (occurrence: IE)
  Receive Date: 20180628
  Receipt Date: 20180628
  Transmission Date: 20180711
  Serious: Yes (Hospitalization)
  Sender: FDA-Public Use
  Company Number: IE-MYLANLABS-2018M1045484

PATIENT
  Age: 69 Year
  Sex: Male

DRUGS (2)
  1. RITUXIMAB. [Suspect]
     Active Substance: RITUXIMAB
     Indication: CHRONIC LYMPHOCYTIC LEUKAEMIA
     Dosage: ON DAY 1
     Route: 065
  2. BENDAMUSTINE HYDROCHLORIDE. [Suspect]
     Active Substance: BENDAMUSTINE HYDROCHLORIDE
     Indication: CHRONIC LYMPHOCYTIC LEUKAEMIA
     Dosage: ON DAYS 1 AND 2
     Route: 042

REACTIONS (3)
  - Prescribed underdose [Unknown]
  - Pneumocystis jirovecii pneumonia [Recovering/Resolving]
  - Hypotension [Recovered/Resolved]
